FAERS Safety Report 5932499-3 (Version None)
Quarter: 2008Q4

REPORT INFORMATION
  Report Type: 
  Country: None (occurrence: None)
  Receive Date: 20081028
  Receipt Date: 20081017
  Transmission Date: 20090506
  Serious: Yes (Hospitalization)
  Sender: FDA-Public Use
  Company Number: US-AMGEN-US314770

PATIENT
  Weight: 3.66 kg

DRUGS (1)
  1. ENBREL [Suspect]
     Route: 064
     Dates: start: 20071216, end: 20080112

REACTIONS (4)
  - BLOOD GLUCOSE DECREASED [None]
  - JAUNDICE NEONATAL [None]
  - LUNG INFECTION [None]
  - NEONATAL ASPIRATION [None]
